FAERS Safety Report 19979857 (Version 3)
Quarter: 2021Q4

REPORT INFORMATION
  Report Type: Report from Study
  Country: CA (occurrence: CA)
  Receive Date: 20211021
  Receipt Date: 20211116
  Transmission Date: 20220303
  Serious: Yes (Death, Hospitalization, Other)
  Sender: FDA-Public Use
  Company Number: CA-NOVARTISPH-NVSC2009CA005263

PATIENT
  Sex: Male

DRUGS (10)
  1. SANDOSTATIN LAR DEPOT [Suspect]
     Active Substance: OCTREOTIDE ACETATE
     Indication: Neuroendocrine tumour
     Dosage: 20 MG, Q4W
     Route: 030
     Dates: start: 20090828
  2. SANDOSTATIN LAR DEPOT [Suspect]
     Active Substance: OCTREOTIDE ACETATE
     Dosage: 30 MG, Q4W
     Route: 030
     Dates: start: 20090828
  3. SANDOSTATIN LAR DEPOT [Suspect]
     Active Substance: OCTREOTIDE ACETATE
     Dosage: 30 MG, QMO
     Route: 030
     Dates: start: 20090911
  4. SANDOSTATIN LAR DEPOT [Suspect]
     Active Substance: OCTREOTIDE ACETATE
     Dosage: 30 MG, Q4W
     Route: 030
  5. SANDOSTATIN LAR DEPOT [Suspect]
     Active Substance: OCTREOTIDE ACETATE
     Dosage: 30 MG, Q4W
     Route: 030
     Dates: start: 20200717
  6. LENVIMA [Suspect]
     Active Substance: LENVATINIB
     Indication: Product used for unknown indication
     Dosage: 12 MG, QD
     Route: 065
     Dates: start: 20201211, end: 20210106
  7. LENVIMA [Suspect]
     Active Substance: LENVATINIB
     Dosage: 8 MG, QD
     Route: 065
     Dates: start: 20210113
  8. LENVIMA [Suspect]
     Active Substance: LENVATINIB
     Dosage: 12 MG, QD
     Route: 065
     Dates: start: 20210127
  9. LENVIMA [Suspect]
     Active Substance: LENVATINIB
     Dosage: 8 MG
     Route: 065
     Dates: start: 20210710
  10. ADALAT [Concomitant]
     Active Substance: NIFEDIPINE
     Indication: Product used for unknown indication
     Dosage: UNK
     Route: 065
     Dates: end: 20130716

REACTIONS (79)
  - Death [Fatal]
  - Renal disorder [Unknown]
  - Liver disorder [Unknown]
  - Ascites [Unknown]
  - Abdominal pain [Unknown]
  - Stress [Unknown]
  - Pancreatic neoplasm [Unknown]
  - Gastric haemorrhage [Unknown]
  - Gastrointestinal disorder [Unknown]
  - Abdominal distension [Unknown]
  - Eating disorder symptom [Unknown]
  - Epigastric discomfort [Unknown]
  - Frequent bowel movements [Unknown]
  - Faeces soft [Unknown]
  - Renal impairment [Unknown]
  - Paralysis [Unknown]
  - Pancreatic neuroendocrine tumour [Unknown]
  - Malignant neoplasm progression [Unknown]
  - Neoplasm progression [Unknown]
  - Nasopharyngitis [Unknown]
  - Feeling cold [Unknown]
  - Cell marker increased [Unknown]
  - Cough [Unknown]
  - Influenza [Unknown]
  - Oedema [Unknown]
  - Pain in extremity [Unknown]
  - Oedema peripheral [Not Recovered/Not Resolved]
  - Insomnia [Unknown]
  - Glossodynia [Unknown]
  - Depressed mood [Unknown]
  - Taste disorder [Unknown]
  - Weight decreased [Unknown]
  - Dysstasia [Unknown]
  - Pain [Recovered/Resolved]
  - Hyperproteinaemia [Unknown]
  - Muscle spasms [Recovered/Resolved]
  - Musculoskeletal discomfort [Unknown]
  - Blood pressure increased [Unknown]
  - Muscle tightness [Unknown]
  - Blister [Recovering/Resolving]
  - Limb discomfort [Unknown]
  - Gout [Recovering/Resolving]
  - Back pain [Recovered/Resolved]
  - Anxiety [Unknown]
  - Blood creatinine increased [Unknown]
  - Glomerular filtration rate decreased [Unknown]
  - Palmar-plantar erythrodysaesthesia syndrome [Unknown]
  - Arthralgia [Unknown]
  - Joint stiffness [Unknown]
  - Pain [Unknown]
  - Joint swelling [Unknown]
  - Hyperkeratosis [Unknown]
  - Pruritus [Unknown]
  - Muscle spasms [Unknown]
  - Malaise [Unknown]
  - Nervousness [Unknown]
  - Herpes zoster [Unknown]
  - Blood uric acid increased [Unknown]
  - Peripheral swelling [Unknown]
  - Eructation [Unknown]
  - Back pain [Unknown]
  - Gait disturbance [Unknown]
  - Diarrhoea [Unknown]
  - Dysphonia [Unknown]
  - Abdominal discomfort [Unknown]
  - Abdominal pain upper [Unknown]
  - Flatulence [Unknown]
  - Decreased appetite [Unknown]
  - Rash [Unknown]
  - Fatigue [Unknown]
  - Nausea [Unknown]
  - Dyspepsia [Unknown]
  - Vomiting [Unknown]
  - Headache [Recovered/Resolved]
  - Injection site pain [Unknown]
  - Injection site mass [Unknown]
  - Needle issue [Unknown]
  - Blood test abnormal [Unknown]
  - Polyp [Unknown]

NARRATIVE: CASE EVENT DATE: 20090101
